FAERS Safety Report 23266106 (Version 6)
Quarter: 2024Q3

REPORT INFORMATION
  Report Type: Spontaneous
  Country: PT (occurrence: PT)
  Receive Date: 20231206
  Receipt Date: 20240718
  Transmission Date: 20241017
  Serious: Yes (Other)
  Sender: JOHNSON AND JOHNSON
  Company Number: None

PATIENT
  Age: 13 Year
  Sex: Male
  Weight: 56 kg

DRUGS (4)
  1. INVEGA [Suspect]
     Active Substance: PALIPERIDONE
     Indication: Psychomotor hyperactivity
     Dosage: 1 TABLET AT BREAKFAST
     Route: 048
     Dates: start: 20210415, end: 20231122
  2. INVEGA [Suspect]
     Active Substance: PALIPERIDONE
     Indication: Delirium
  3. INVEGA [Suspect]
     Active Substance: PALIPERIDONE
     Indication: Aggression
  4. OLANZAPINE [Concomitant]
     Active Substance: OLANZAPINE
     Route: 048

REACTIONS (5)
  - Blood parathyroid hormone decreased [Recovered/Resolved]
  - Dry eye [Recovered/Resolved]
  - Bone demineralisation [Recovered/Resolved]
  - Chest pain [Recovered/Resolved]
  - Arthralgia [Recovered/Resolved]

NARRATIVE: CASE EVENT DATE: 20220503
